FAERS Safety Report 20884251 (Version 1)
Quarter: 2022Q2

REPORT INFORMATION
  Report Type: Spontaneous
  Country: US (occurrence: None)
  Receive Date: 20220526
  Receipt Date: 20220526
  Transmission Date: 20220721
  Serious: Yes (Other)
  Sender: FDA-Public Use
  Company Number: None

PATIENT
  Age: 62 Year
  Sex: Female

DRUGS (9)
  1. ORENCIA [Suspect]
     Active Substance: ABATACEPT
     Indication: Rheumatoid arthritis
     Dosage: INJECT 125 MG UNDER THE SKIN (SUBCUTANEOUS INJECTION) WEEKLY?
     Route: 058
     Dates: start: 20220505
  2. CELEBREX [Concomitant]
     Active Substance: CELECOXIB
  3. FLUOXETINE CAP [Concomitant]
  4. LEVOTHYROXIN TAB [Concomitant]
  5. LORATADINE TAB [Concomitant]
  6. METHOTREXATE [Concomitant]
     Active Substance: METHOTREXATE
  7. PLAQUENIL [Concomitant]
     Active Substance: HYDROXYCHLOROQUINE SULFATE
  8. VANCOMYCIN INJ [Concomitant]
  9. VITAMIN D3 LIQ [Concomitant]

REACTIONS (1)
  - Post procedural infection [None]

NARRATIVE: CASE EVENT DATE: 20220507
